FAERS Safety Report 5134707-8 (Version None)
Quarter: 2006Q4

REPORT INFORMATION
  Report Type: 
  Country: None (occurrence: None)
  Receive Date: 20061019
  Receipt Date: 20061010
  Transmission Date: 20070319
  Serious: Yes (Death, Hospitalization, Other)
  Sender: FDA-Public Use
  Company Number: 163-21880-06020665

PATIENT
  Age: 76 Year
  Sex: Male

DRUGS (5)
  1. REVLIMID [Suspect]
     Indication: MYELODYSPLASTIC SYNDROME
     Dosage: SEE IMAGE
     Route: 048
     Dates: start: 20060210, end: 20060301
  2. REVLIMID [Suspect]
     Indication: MYELODYSPLASTIC SYNDROME
     Dosage: SEE IMAGE
     Route: 048
     Dates: start: 20060725
  3. PROCRIT [Concomitant]
  4. NEUPOGEN [Concomitant]
  5. EPOGEN [Concomitant]

REACTIONS (4)
  - BLOOD COUNT ABNORMAL [None]
  - CEREBROVASCULAR ACCIDENT [None]
  - FALL [None]
  - TRANSIENT ISCHAEMIC ATTACK [None]
